FAERS Safety Report 15160053 (Version 2)
Quarter: 2018Q3

REPORT INFORMATION
  Report Type: Spontaneous
  Country: JP (occurrence: JP)
  Receive Date: 20180718
  Receipt Date: 20180802
  Transmission Date: 20181010
  Serious: Yes (Hospitalization, Other)
  Sender: FDA-Public Use
  Company Number: JP-SA-2018SA184351

PATIENT
  Age: 69 Year
  Sex: Male
  Weight: 50.4 kg

DRUGS (1)
  1. BCG FOR IMMUNOTHERAPY [Suspect]
     Active Substance: BACILLUS CALMETTE-GUERIN ANTIGEN, UNSPECIFIED SUBSTRAIN
     Indication: BLADDER CANCER STAGE I, WITH CANCER IN SITU
     Dosage: UNK
     Route: 043

REACTIONS (4)
  - Urinary bladder rupture [Recovered/Resolved]
  - Dysuria [Recovered/Resolved]
  - Cystitis noninfective [Recovered/Resolved]
  - Abdominal pain lower [Recovered/Resolved]
